FAERS Safety Report 21632617 (Version 3)
Quarter: 2023Q4

REPORT INFORMATION
  Report Type: Report from Study
  Country: US (occurrence: US)
  Receive Date: 20221123
  Receipt Date: 20231024
  Transmission Date: 20240110
  Serious: No
  Sender: FDA-Public Use
  Company Number: US-IDORSIA-002127-2022-US

PATIENT
  Sex: Male

DRUGS (5)
  1. QUVIVIQ [Suspect]
     Active Substance: DARIDOREXANT
     Indication: Insomnia
     Dosage: 25 MG, QD
     Route: 048
     Dates: start: 202211, end: 202211
  2. HYDROXYZINE [Concomitant]
     Active Substance: HYDROXYZINE HYDROCHLORIDE
     Indication: Hypertension
  3. LATUDA [Concomitant]
     Active Substance: LURASIDONE HYDROCHLORIDE
     Indication: Bipolar disorder
  4. DEPAKOTE [Concomitant]
     Active Substance: DIVALPROEX SODIUM
  5. CAPLYTA [Concomitant]
     Active Substance: LUMATEPERONE

REACTIONS (2)
  - Abnormal dreams [Unknown]
  - Drug ineffective [Unknown]
